FAERS Safety Report 18408511 (Version 2)
Quarter: 2020Q4

REPORT INFORMATION
  Report Type: Not Available
  Country: US (occurrence: US)
  Receive Date: 20201020
  Receipt Date: 20201105
  Transmission Date: 20210114
  Serious: Yes (Death, Hospitalization)
  Sender: FDA-Public Use
  Company Number: US-NEUROCRINE BIOSCIENCES INC.-2020NBI03791

PATIENT
  Age: 91 Year
  Sex: Male
  Weight: 65.38 kg

DRUGS (23)
  1. FLONASE [Concomitant]
     Active Substance: FLUTICASONE PROPIONATE
     Dosage: ONE SPRAY IN EACH NOSTRIL EVERY MORNING AND EVERY EVENING
     Route: 045
  2. PRILOSEC [Concomitant]
     Active Substance: OMEPRAZOLE MAGNESIUM
     Dosage: DELAYED RELEASE CAPSULE; EVERY MORNING AND EVENING
     Route: 048
  3. ZINC. [Concomitant]
     Active Substance: ZINC
  4. PLAVIX [Concomitant]
     Active Substance: CLOPIDOGREL BISULFATE
     Dosage: IN THE MOUTH
     Route: 048
  5. LANTUS [Concomitant]
     Active Substance: INSULIN GLARGINE
  6. PRAVASTATIN. [Concomitant]
     Active Substance: PRAVASTATIN
  7. NITROSTAT [Concomitant]
     Active Substance: NITROGLYCERIN
     Indication: CHEST PAIN
     Dosage: ONE TABLET UNDER THE TONGUE EVERY 5 MINUTES AS NEEDED
     Route: 060
  8. OCUFLOX [Concomitant]
     Active Substance: OFLOXACIN
     Dosage: INSTILL ONE DROP INTO BOTH EYES DAILY
     Route: 047
  9. INGREZZA [Suspect]
     Active Substance: VALBENAZINE
     Indication: TARDIVE DYSKINESIA
     Route: 048
     Dates: start: 20190709
  10. COLACE [Concomitant]
     Active Substance: DOCUSATE SODIUM
     Dosage: MORNING AND EVENING
     Route: 048
  11. LASIX [Concomitant]
     Active Substance: FUROSEMIDE
     Dosage: TAKE 2 TABLETS IN THE MORNING AND 1 TABLET AT NOON
  12. DAILY-VITE [Concomitant]
     Route: 048
  13. IMDUR [Concomitant]
     Active Substance: ISOSORBIDE MONONITRATE
     Dosage: EXTENDED RELEASE TABLET 24 HR; 1/2 TABLET DAILY IN THE MORNING
     Route: 048
  14. SINGULAIR [Concomitant]
     Active Substance: MONTELUKAST SODIUM
     Dosage: AT BEDTIME
     Route: 048
  15. MACROBID [Concomitant]
     Active Substance: NITROFURANTOIN\NITROFURANTOIN MONOHYDRATE
     Dosage: TAKE MONDAY, WEDNESDAY AND FRIDAY
  16. ALLOPURINOL. [Concomitant]
     Active Substance: ALLOPURINOL
  17. ASCORBIC ACID. [Concomitant]
     Active Substance: ASCORBIC ACID
     Route: 048
  18. BASAGLAR KWIKPEN [Concomitant]
     Active Substance: INSULIN GLARGINE
     Dosage: 100 UNITS/ ML (3 ML);
     Route: 058
  19. FERROUS SULFATE. [Concomitant]
     Active Substance: FERROUS SULFATE
     Dosage: 325 (65 FE) MG; ONE TABLET WITH MEAL ON MONDAY, WEDNESDAY, FRIDAY
     Route: 048
  20. IMDUR [Concomitant]
     Active Substance: ISOSORBIDE MONONITRATE
     Dosage: EXTENDED RELEASE TABLET 24 HR
     Route: 048
  21. MUCINEX [Concomitant]
     Active Substance: GUAIFENESIN
     Indication: COUGH
     Dosage: EXTENDED RELEASE 12HR; GIVEN AT 8 AM AND 8 PM AS NEEDED
  22. ASPIRIN. [Concomitant]
     Active Substance: ASPIRIN
     Dosage: AT NIGHT
     Route: 048
  23. FISH OIL [Concomitant]
     Active Substance: FISH OIL
     Dosage: 60-90-500MG
     Route: 048

REACTIONS (1)
  - Coronary artery disease [Fatal]
